FAERS Safety Report 13024247 (Version 1)
Quarter: 2016Q4

REPORT INFORMATION
  Report Type: Report from Study
  Country: None (occurrence: US)
  Receive Date: 20161213
  Receipt Date: 20161213
  Transmission Date: 20170207
  Serious: Yes (Other)
  Sender: FDA-Public Use
  Company Number: US-ABBVIE-16K-163-1801448-00

PATIENT
  Sex: Male

DRUGS (3)
  1. HUMIRA [Suspect]
     Active Substance: ADALIMUMAB
     Indication: PSORIATIC ARTHROPATHY
     Route: 058
  2. HUMIRA [Interacting]
     Active Substance: ADALIMUMAB
     Indication: PSORIASIS
  3. ATARAX [Interacting]
     Active Substance: HYDROXYZINE\HYDROXYZINE HYDROCHLORIDE
     Indication: PRODUCT USED FOR UNKNOWN INDICATION
     Route: 065

REACTIONS (13)
  - Drug interaction [Unknown]
  - Eye swelling [Unknown]
  - Gallbladder disorder [Unknown]
  - Fatigue [Not Recovered/Not Resolved]
  - Scratch [Unknown]
  - Incorrect dose administered [Unknown]
  - Psoriasis [Unknown]
  - Device issue [Unknown]
  - Skin haemorrhage [Unknown]
  - Nasopharyngitis [Unknown]
  - Malaise [Unknown]
  - Infection susceptibility increased [Unknown]
  - Psoriatic arthropathy [Unknown]

NARRATIVE: CASE EVENT DATE: 2014
